FAERS Safety Report 19922698 (Version 2)
Quarter: 2023Q4

REPORT INFORMATION
  Report Type: Spontaneous
  Country: US (occurrence: US)
  Receive Date: 20211005
  Receipt Date: 20231027
  Transmission Date: 20240110
  Serious: No
  Sender: FDA-Public Use
  Company Number: US-AVEO ONCOLOGY-2021-AVEO-US003423

PATIENT

DRUGS (12)
  1. FOTIVDA [Suspect]
     Active Substance: TIVOZANIB HYDROCHLORIDE
     Indication: Renal cell carcinoma
     Dosage: 1.34 MG
     Route: 048
  2. CABOMETYX [Concomitant]
     Active Substance: CABOZANTINIB S-MALATE
  3. CEPHALEXIN [Concomitant]
     Active Substance: CEPHALEXIN
  4. ATROPINE\DIPHENOXYLATE [Concomitant]
     Active Substance: ATROPINE\DIPHENOXYLATE
  5. DOCUSATE [Concomitant]
     Active Substance: DOCUSATE
  6. FENTANYL [Concomitant]
     Active Substance: FENTANYL\FENTANYL CITRATE
  7. HYDROMORPHONE [Concomitant]
     Active Substance: HYDROMORPHONE
  8. LEVOFLOXACIN [Concomitant]
     Active Substance: LEVOFLOXACIN
  9. OXYCODONE [Concomitant]
     Active Substance: OXYCODONE
  10. PERCOCET [Concomitant]
     Active Substance: ACETAMINOPHEN\OXYCODONE HYDROCHLORIDE
  11. PREDNISONE [Concomitant]
     Active Substance: PREDNISONE
  12. ZOFRAN [Concomitant]
     Active Substance: ONDANSETRON HYDROCHLORIDE

REACTIONS (1)
  - Diarrhoea [Unknown]
